FAERS Safety Report 7271053-0 (Version None)
Quarter: 2011Q1

REPORT INFORMATION
  Report Type: 
  Country: None (occurrence: None)
  Receive Date: 20110202
  Receipt Date: 20110127
  Transmission Date: 20110831
  Serious: Yes (Other)
  Sender: FDA-Public Use
  Company Number: GB-PFIZER INC-2011020364

PATIENT
  Age: 73 Year
  Sex: Female

DRUGS (15)
  1. ZOPICLONE [Concomitant]
     Dosage: UNK
  2. PARACETAMOL [Concomitant]
     Dosage: UNK
  3. BENDROFLUMETHIAZIDE [Concomitant]
     Dosage: UNK
  4. ATORVASTATIN [Concomitant]
     Dosage: UNK
  5. DIAZEPAM [Concomitant]
     Dosage: UNK
  6. TETRABENAZINE [Concomitant]
     Dosage: UNK
  7. LANSOPRAZOLE [Concomitant]
     Dosage: UNK
  8. MIRTAZAPINE [Concomitant]
     Dosage: UNK
  9. LERCANIDIPINE [Concomitant]
     Dosage: UNK
  10. GAVISCON [Concomitant]
     Dosage: UNK
  11. CARDURA [Suspect]
     Dosage: 8 MG, UNK
  12. SENNA [Concomitant]
     Dosage: UNK
  13. PREGABALIN [Concomitant]
     Dosage: UNK
  14. SALBUTAMOL [Concomitant]
     Dosage: UNK
  15. ACETYLSALICYLIC ACID [Concomitant]
     Dosage: UNK

REACTIONS (2)
  - CEREBROVASCULAR ACCIDENT [None]
  - CEREBRAL DISORDER [None]
